FAERS Safety Report 6924066-X (Version None)
Quarter: 2010Q3

REPORT INFORMATION
  Report Type: 
  Country: None (occurrence: None)
  Receive Date: 20100813
  Receipt Date: 20100803
  Transmission Date: 20110219
  Serious: Yes (Hospitalization)
  Sender: FDA-Public Use
  Company Number: MX-AMGEN-QUU430997

PATIENT
  Sex: Female
  Weight: 78.5 kg

DRUGS (5)
  1. ENBREL [Suspect]
     Indication: RHEUMATOID ARTHRITIS
     Route: 058
     Dates: start: 20100504
  2. OMEPRAZOLE [Concomitant]
     Indication: GASTRITIS
     Dosage: 20 DAILY (UNITS UNSPECIFIED)
     Route: 048
     Dates: start: 20100101
  3. ATENOLOL [Concomitant]
     Indication: HYPERTENSION
     Dosage: 100 DAILY (UNITS UNSPECIFIED)
     Route: 048
     Dates: start: 20050601
  4. PREDNISONE [Concomitant]
     Indication: RHEUMATOID ARTHRITIS
     Dosage: 5 DAILY (UNITS UNSPECIFIED)
     Route: 048
     Dates: start: 20090101
  5. LEVOTHYROXINE [Concomitant]
     Indication: HYPOTHYROIDISM
     Dosage: 125 DAILY (UNITS UNSPECIFIED)
     Route: 048
     Dates: start: 20040601

REACTIONS (1)
  - ATRIAL FIBRILLATION [None]
